FAERS Safety Report 5621560-9 (Version None)
Quarter: 2008Q1

REPORT INFORMATION
  Report Type: 
  Country: None (occurrence: None)
  Receive Date: 20080211
  Receipt Date: 20080130
  Transmission Date: 20080703
  Serious: Yes (Hospitalization)
  Sender: FDA-Public Use
  Company Number: US-BAYER-200812639NA

PATIENT
  Age: 56 Year
  Sex: Female
  Weight: 99 kg

DRUGS (11)
  1. SORAFENIB [Suspect]
     Indication: BREAST CANCER METASTATIC
     Dosage: TOTAL DAILY DOSE: 400 MG  UNIT DOSE: 200 MG
     Route: 048
     Dates: start: 20071109
  2. ABRAXANE [Suspect]
     Indication: BREAST CANCER METASTATIC
     Dosage: AS USED: 264 MG
     Route: 042
     Dates: start: 20070928, end: 20071012
  3. ABRAXANE [Suspect]
     Dosage: AS USED: 159 MG
     Route: 042
     Dates: start: 20080124
  4. ABRAXANE [Suspect]
     Dosage: AS USED: 211 MG
     Route: 042
     Dates: start: 20071102, end: 20080104
  5. ZOMETA [Concomitant]
     Indication: METASTASES TO BONE
     Dosage: AS USED: 4 MG
     Route: 042
     Dates: start: 20070928
  6. ALTACE [Concomitant]
     Indication: HYPERTENSION
     Dosage: TOTAL DAILY DOSE: 10 MG
     Route: 048
     Dates: start: 19870101
  7. LORTAB [Concomitant]
     Indication: ARTHRALGIA
     Route: 048
     Dates: start: 20070812
  8. COMPAZINE [Concomitant]
     Indication: NAUSEA
     Dosage: AS USED: 10 MG
     Route: 048
     Dates: start: 20070920
  9. DULCOLAX [Concomitant]
     Indication: CONSTIPATION
     Route: 048
     Dates: start: 20070913
  10. ARANESP [Concomitant]
     Indication: ANAEMIA
     Dosage: TOTAL DAILY DOSE: 300 ?G
     Route: 058
     Dates: start: 20071130
  11. OXYGEN [Concomitant]
     Indication: DYSPNOEA
     Dates: start: 20071107

REACTIONS (1)
  - SUBCUTANEOUS ABSCESS [None]
